FAERS Safety Report 6724880-X (Version None)
Quarter: 2010Q2

REPORT INFORMATION
  Report Type: 
  Country: None (occurrence: None)
  Receive Date: 20100513
  Receipt Date: 20100513
  Transmission Date: 20101027
  Serious: Yes (Other)
  Sender: FDA-Public Use
  Company Number: None

PATIENT
  Sex: Female

DRUGS (1)
  1. FORTEO [Suspect]
     Indication: OSTEOPOROSIS
     Dosage: 20MCG QD SQ
     Route: 058
     Dates: start: 20100301, end: 20100504

REACTIONS (2)
  - BONE PAIN [None]
  - MUSCLE DISORDER [None]
